FAERS Safety Report 15884825 (Version 2)
Quarter: 2019Q2

REPORT INFORMATION
  Report Type: Report from Study
  Country: US (occurrence: US)
  Receive Date: 20190129
  Receipt Date: 20190624
  Transmission Date: 20190711
  Serious: No
  Sender: FDA-Public Use
  Company Number: PHEH2019US004164

PATIENT
  Sex: Female

DRUGS (1)
  1. GILENYA [Suspect]
     Active Substance: FINGOLIMOD HYDROCHLORIDE
     Indication: MULTIPLE SCLEROSIS
     Dosage: 0.5 MG, QD (TWICE A WEEK, MONDAY AND FRIDAY)
     Route: 048
     Dates: start: 20181003

REACTIONS (4)
  - Prescribed underdose [Unknown]
  - Malaise [Unknown]
  - Dizziness [Unknown]
  - Bladder disorder [Unknown]
